FAERS Safety Report 24722476 (Version 2)
Quarter: 2025Q1

REPORT INFORMATION
  Report Type: Spontaneous
  Country: US (occurrence: US)
  Receive Date: 20241211
  Receipt Date: 20250306
  Transmission Date: 20250408
  Serious: No
  Sender: BLUEPRINT MEDICINES
  Company Number: US-Blueprint Medicines Corporation-5574

PATIENT
  Age: 53 Year
  Sex: Female

DRUGS (2)
  1. AYVAKIT [Suspect]
     Active Substance: AVAPRITINIB
     Indication: Mastocytoma
     Route: 048
     Dates: start: 20240402, end: 202502
  2. AYVAKIT [Suspect]
     Active Substance: AVAPRITINIB
     Route: 065

REACTIONS (3)
  - Hair colour changes [Unknown]
  - Adverse drug reaction [Unknown]
  - Off label use [Unknown]

NARRATIVE: CASE EVENT DATE: 20240402
